FAERS Safety Report 8398672 (Version 7)
Quarter: 2012Q4

REPORT INFORMATION
  Report Type: 
  Country: US (occurrence: US)
  Receive Date: 20120209
  Receipt Date: 20121003
  Transmission Date: 20130627
  Serious: Yes (Hospitalization, Other)
  Sender: FDA-Public Use
  Company Number: US-009507513-1202USA01297

PATIENT

DRUGS (9)
  1. FOSAMAX [Suspect]
     Indication: OSTEOPOROSIS
     Dosage: 70 mg, qw
     Route: 048
     Dates: start: 20030807, end: 20100325
  2. FOSAMAX [Suspect]
     Indication: OSTEOPENIA
  3. FOSAMAX [Suspect]
     Indication: PROPHYLAXIS
  4. FOSAMAX [Suspect]
     Dosage: 70 mg, UNK
     Route: 048
     Dates: start: 20080506
  5. ALENDRONATE SODIUM [Suspect]
     Dosage: 70 mg, UNK
     Route: 048
     Dates: start: 20080814
  6. CENTRUM SILVER [Concomitant]
     Dosage: UNK
  7. CALTRATE WITH VITAMIN D [Concomitant]
     Dosage: UNK
  8. VITAMIN D (UNSPECIFIED) [Concomitant]
     Dosage: UNK
  9. OMEGA-3 MARINE TRIGLYCERIDES [Concomitant]
     Dosage: UNK

REACTIONS (18)
  - Arteriosclerosis [Unknown]
  - Skin cancer [Unknown]
  - Femur fracture [Recovered/Resolved]
  - Tooth disorder [Unknown]
  - Tooth infection [Unknown]
  - Hypertension [Not Recovered/Not Resolved]
  - Hyperlipidaemia [Not Recovered/Not Resolved]
  - Lumbar spinal stenosis [Not Recovered/Not Resolved]
  - Rotator cuff syndrome [Unknown]
  - Myocardial ischaemia [Unknown]
  - Ventricular extrasystoles [Unknown]
  - Limb asymmetry [Unknown]
  - Spinal deformity [Unknown]
  - Spinal osteoarthritis [Not Recovered/Not Resolved]
  - Cardiac valve disease [Not Recovered/Not Resolved]
  - Lumbar radiculopathy [Unknown]
  - Dizziness [Unknown]
  - Musculoskeletal pain [Unknown]
